FAERS Safety Report 7796929-7 (Version None)
Quarter: 2011Q4

REPORT INFORMATION
  Report Type: 
  Country: None (occurrence: None)
  Receive Date: 20111005
  Receipt Date: 20110930
  Transmission Date: 20120403
  Serious: Yes (Death, Hospitalization)
  Sender: FDA-Public Use
  Company Number: US-BAYER-2011-042515

PATIENT
  Age: 83 Year
  Sex: Female

DRUGS (7)
  1. NEXAVAR [Suspect]
     Indication: HEPATIC NEOPLASM MALIGNANT
     Dosage: 400 MG, BID
     Route: 048
     Dates: start: 20110503, end: 20110513
  2. ANTIHYPERTENSIVES [Concomitant]
     Indication: HYPERTENSION
     Dosage: UNK
  3. DETROL LA [Concomitant]
  4. METOPROLOL SUCCINATE [Concomitant]
  5. SPIRONOLACTONE [Concomitant]
  6. LACTULOSE [Concomitant]
  7. XIFAXAN [Concomitant]

REACTIONS (7)
  - BLOOD PRESSURE INCREASED [None]
  - UNRESPONSIVE TO STIMULI [None]
  - RASH PRURITIC [None]
  - DEATH [None]
  - DIARRHOEA [None]
  - LOSS OF CONSCIOUSNESS [None]
  - CEREBRAL HAEMORRHAGE [None]
